FAERS Safety Report 4606627-6 (Version None)
Quarter: 2005Q2

REPORT INFORMATION
  Report Type: 
  Country: None (occurrence: None)
  Receive Date: 20050223
  Receipt Date: 20040413
  Transmission Date: 20051028
  Serious: Yes (Other)
  Sender: FDA-Public Use
  Company Number: WAES 0404USA01311

PATIENT
  Age: 76 Year
  Sex: Male

DRUGS (7)
  1. ZOCOR [Suspect]
     Indication: HYPERCHOLESTEROLAEMIA
     Dosage: 40 MG/DAILY/PO;  20 MG/DAILY/PO;
     Route: 048
     Dates: end: 20040329
  2. ZOCOR [Suspect]
     Indication: HYPERCHOLESTEROLAEMIA
     Dosage: 40 MG/DAILY/PO;  20 MG/DAILY/PO;
     Route: 048
     Dates: start: 20040330, end: 20040330
  3. ACIPHEX [Concomitant]
  4. HYDRODIURIL [Concomitant]
  5. PRINIVIL [Concomitant]
  6. TOPROL-XL [Concomitant]
  7. ALLOPURINOL [Concomitant]

REACTIONS (3)
  - ADVERSE EVENT [None]
  - HYPERSENSITIVITY [None]
  - PRURITUS [None]
